FAERS Safety Report 8259164-4 (Version None)
Quarter: 2012Q2

REPORT INFORMATION
  Report Type: 
  Country: None (occurrence: None)
  Receive Date: 20120404
  Receipt Date: 20120326
  Transmission Date: 20120825
  Serious: Yes (Other)
  Sender: FDA-Public Use
  Company Number: SE-FRI-1000029532

PATIENT
  Age: 39 Year
  Sex: Female

DRUGS (1)
  1. ESCITALOPRAM [Suspect]
     Indication: PREMENSTRUAL SYNDROME
     Dosage: 10 MG
     Route: 048
     Dates: start: 20110920

REACTIONS (1)
  - ELECTRIC SHOCK [None]
